FAERS Safety Report 14448072 (Version 1)
Quarter: 2018Q1

REPORT INFORMATION
  Report Type: Spontaneous
  Country: FR (occurrence: FR)
  Receive Date: 20180126
  Receipt Date: 20180126
  Transmission Date: 20180509
  Serious: Yes (Hospitalization)
  Sender: FDA-Public Use
  Company Number: FR-BAYER-2018-010961

PATIENT
  Age: 62 Year
  Sex: Male

DRUGS (10)
  1. XOFIGO [Suspect]
     Active Substance: RADIUM RA-223 DICHLORIDE
     Indication: PROSTATE CANCER METASTATIC
     Route: 042
  2. ELIGARD [Concomitant]
     Active Substance: LEUPROLIDE ACETATE
  3. XTANDI [Concomitant]
     Active Substance: ENZALUTAMIDE
  4. CABAZITAXEL [Concomitant]
     Active Substance: CABAZITAXEL
  5. CARBOPLATIN. [Suspect]
     Active Substance: CARBOPLATIN
     Indication: PROSTATE CANCER METASTATIC
     Route: 042
  6. XGEVA [Concomitant]
     Active Substance: DENOSUMAB
  7. ZYTIGA [Concomitant]
     Active Substance: ABIRATERONE ACETATE
  8. CASODEX [Concomitant]
     Active Substance: BICALUTAMIDE
  9. TAXOTERE [Concomitant]
     Active Substance: DOCETAXEL
  10. ETOPOSIDE. [Suspect]
     Active Substance: ETOPOSIDE
     Indication: PROSTATE CANCER METASTATIC
     Route: 042

REACTIONS (1)
  - Myelodysplastic syndrome [Not Recovered/Not Resolved]

NARRATIVE: CASE EVENT DATE: 201710
